FAERS Safety Report 9728482 (Version 1)
Quarter: 2013Q4

REPORT INFORMATION
  Report Type: Spontaneous
  Country: GB (occurrence: None)
  Receive Date: 20131202
  Receipt Date: 20131202
  Transmission Date: 20140711
  Serious: Yes (Other)
  Sender: FDA-Public Use
  Company Number: CL-539-2013

PATIENT
  Age: 71 Year
  Sex: Male

DRUGS (2)
  1. ONDANSETRON [Suspect]
     Indication: CHEMOTHERAPY
     Dosage: 8MG CYCLICAL INFUSION
     Route: 042
     Dates: start: 201104
  2. DOCETAXEL [Concomitant]

REACTIONS (5)
  - Priapism [None]
  - Neuropathy peripheral [None]
  - Chest pain [None]
  - Nail toxicity [None]
  - Oedema peripheral [None]
